FAERS Safety Report 17391300 (Version 1)
Quarter: 2020Q1

REPORT INFORMATION
  Report Type: Spontaneous
  Country: US (occurrence: US)
  Receive Date: 20200207
  Receipt Date: 20200207
  Transmission Date: 20200409
  Serious: Yes (Other)
  Sender: FDA-Public Use
  Company Number: US-AMERICAN REGENT INC-2020000322

PATIENT
  Age: 36 Year
  Sex: Female

DRUGS (1)
  1. DROPERIDOL INJECTION, USP (9702-25) [Suspect]
     Active Substance: DROPERIDOL
     Indication: MENTAL DISORDER

REACTIONS (2)
  - Embolism venous [Unknown]
  - Product use in unapproved indication [Unknown]
